FAERS Safety Report 8862315 (Version 1)
Quarter: 2012Q4

REPORT INFORMATION
  Report Type: 
  Country: MX (occurrence: MX)
  Receive Date: 20121026
  Receipt Date: 20121026
  Transmission Date: 20130627
  Serious: Yes (Death)
  Sender: FDA-Public Use
  Company Number: MX-JNJFOC-20121012705

PATIENT
  Sex: Female

DRUGS (1)
  1. XARELTO [Suspect]
     Indication: HYPERCOAGULATION
     Route: 065

REACTIONS (1)
  - Aneurysm [Fatal]
